FAERS Safety Report 11383493 (Version 2)
Quarter: 2019Q2

REPORT INFORMATION
  Report Type: Spontaneous
  Country: US (occurrence: US)
  Receive Date: 20150814
  Receipt Date: 20190409
  Transmission Date: 20190711
  Serious: Yes (Death, Hospitalization, Other)
  Sender: FDA-Public Use
  Company Number: US-009507513-1508USA006128

PATIENT
  Sex: Male
  Weight: 85.26 kg

DRUGS (5)
  1. METOPROLOL. [Concomitant]
     Active Substance: METOPROLOL
     Dosage: 25 MG A HALF TWICE DAILY
     Route: 048
  2. METFORMIN [Concomitant]
     Active Substance: METFORMIN HYDROCHLORIDE
     Dosage: 1000 MG TWICE DAILY
     Route: 048
  3. JANUVIA [Suspect]
     Active Substance: SITAGLIPTIN PHOSPHATE
     Indication: TYPE 2 DIABETES MELLITUS
     Dosage: 50MG ONCE DAILY
     Route: 048
     Dates: start: 20121121, end: 201306
  4. FLUOCINONIDE. [Concomitant]
     Active Substance: FLUOCINONIDE
     Dosage: 0.05% TOPICAL CREAM TWICE DAILY
     Route: 061
  5. DIGOXIN. [Concomitant]
     Active Substance: DIGOXIN
     Dosage: 250 MCG DAILY

REACTIONS (19)
  - Pancreatic carcinoma [Fatal]
  - Diabetic retinopathy [Recovered/Resolved]
  - Chest pain [Unknown]
  - Urine flow decreased [Unknown]
  - Skin disorder [Unknown]
  - Cerebrovascular accident [Recovered/Resolved]
  - Gastrooesophageal reflux disease [Recovered/Resolved]
  - Constipation [Unknown]
  - Splenic cyst [Unknown]
  - Hypoacusis [Unknown]
  - Skin cancer [Unknown]
  - Obstructive airways disorder [Unknown]
  - Diverticulum intestinal [Unknown]
  - Cough [Unknown]
  - Balance disorder [Unknown]
  - Metastases to liver [Unknown]
  - Respiratory failure [Unknown]
  - Splenomegaly [Unknown]
  - Cystitis [Unknown]

NARRATIVE: CASE EVENT DATE: 2013
